FAERS Safety Report 4699732-X (Version None)
Quarter: 2005Q2

REPORT INFORMATION
  Report Type: 
  Country: None (occurrence: None)
  Receive Date: 20050623
  Receipt Date: 20050614
  Transmission Date: 20051028
  Serious: Yes (Death, Other)
  Sender: FDA-Public Use
  Company Number: 056-20785-05060218

PATIENT
  Age: 44 Year
  Sex: Male

DRUGS (1)
  1. THALIDOMIDE(THALIDOMIDE) (CAPSULES) [Suspect]
     Indication: MULTIPLE MYELOMA
     Dosage: MAXIMUM DOSE OF 600 MG

REACTIONS (3)
  - DISEASE PROGRESSION [None]
  - DRUG TOXICITY [None]
  - MULTIPLE MYELOMA [None]
